FAERS Safety Report 6143105-X (Version None)
Quarter: 2009Q2

REPORT INFORMATION
  Report Type: 
  Country: None (occurrence: None)
  Receive Date: 20090401
  Receipt Date: 20090401
  Transmission Date: 20091009
  Serious: No
  Sender: FDA-Public Use
  Company Number: None

PATIENT
  Age: 49 Year
  Sex: Female
  Weight: 89.7 kg

DRUGS (1)
  1. VARENICLINE [Suspect]
     Indication: TOBACCO USER
     Dosage: 1 MG EVERY DAY PO
     Route: 048
     Dates: start: 20081223, end: 20090226

REACTIONS (3)
  - ANXIETY [None]
  - DEPRESSION [None]
  - SUICIDAL IDEATION [None]
